FAERS Safety Report 7610090-0 (Version None)
Quarter: 2011Q3

REPORT INFORMATION
  Report Type: 
  Country: None (occurrence: None)
  Receive Date: 20110715
  Receipt Date: 20110705
  Transmission Date: 20111222
  Serious: Yes (Hospitalization, Other)
  Sender: FDA-Public Use
  Company Number: US-BIOGENIDEC-2011BI019280

PATIENT
  Sex: Male

DRUGS (12)
  1. FLOMAX [Concomitant]
     Indication: NEUROGENIC BLADDER
  2. AVONEX [Suspect]
     Indication: MULTIPLE SCLEROSIS
     Route: 030
  3. LISINOPRIL [Concomitant]
     Indication: PRODUCT USED FOR UNKNOWN INDICATION
  4. BACLOFEN [Concomitant]
  5. DIFLUCAN [Concomitant]
     Indication: CANDIDIASIS
  6. NYSTATIN [Concomitant]
     Indication: CANDIDIASIS
     Route: 061
  7. PLAVIX [Concomitant]
     Indication: PRODUCT USED FOR UNKNOWN INDICATION
  8. DIAZEPAM [Concomitant]
  9. AMANTADINE HCL [Concomitant]
     Indication: MULTIPLE SCLEROSIS
  10. DIAZEPAM [Concomitant]
     Indication: INSOMNIA
  11. HALDOL [Concomitant]
     Indication: AGITATION
  12. BACLOFEN [Concomitant]
     Indication: MUSCLE SPASTICITY

REACTIONS (7)
  - DELIRIUM [None]
  - CARDIAC OPERATION [None]
  - CEREBROVASCULAR ACCIDENT [None]
  - RENAL FAILURE ACUTE [None]
  - COLONOSCOPY [None]
  - URINARY TRACT INFECTION [None]
  - NEUROSURGERY [None]
